FAERS Safety Report 6980200-7 (Version None)
Quarter: 2010Q3

REPORT INFORMATION
  Report Type: 
  Country: None (occurrence: None)
  Receive Date: 20100914
  Receipt Date: 20100831
  Transmission Date: 20110219
  Serious: Yes (Hospitalization)
  Sender: FDA-Public Use
  Company Number: DE-RANBAXY-2010US-37916

PATIENT

DRUGS (3)
  1. PANTOPRAZOLE [Suspect]
     Indication: HELICOBACTER INFECTION
     Dosage: 40 MG, QD
     Route: 065
  2. AMOXICILLIN [Suspect]
     Indication: HELICOBACTER INFECTION
     Dosage: 1 G, BID
     Route: 065
  3. CLARITHROMYCIN [Suspect]
     Indication: HELICOBACTER INFECTION
     Dosage: 500 MG, BID
     Route: 065

REACTIONS (1)
  - ACUTE PSYCHOSIS [None]
